FAERS Safety Report 25799564 (Version 1)
Quarter: 2025Q3

REPORT INFORMATION
  Report Type: Spontaneous
  Country: GB (occurrence: GB)
  Receive Date: 20250914
  Receipt Date: 20250914
  Transmission Date: 20251020
  Serious: Yes (Other)
  Sender: AUROBINDO
  Company Number: GB-MHRA-MED-202509021226057600-SRMPW

PATIENT
  Sex: Male
  Weight: 84 kg

DRUGS (5)
  1. LISINOPRIL [Suspect]
     Active Substance: LISINOPRIL
     Indication: Adverse drug reaction
     Dosage: 2.5 MILLIGRAM, ONCE A DAY
     Route: 065
     Dates: start: 20240204, end: 20250819
  2. RAMIPRIL [Suspect]
     Active Substance: RAMIPRIL
     Indication: Product used for unknown indication
     Route: 065
  3. ADIZEM [Concomitant]
     Active Substance: DILTIAZEM HYDROCHLORIDE
     Indication: Blood pressure measurement
     Dosage: 300 MILLIGRAM, ONCE A DAY
     Route: 065
     Dates: start: 20041003
  4. ASPIRIN [Concomitant]
     Active Substance: ASPIRIN
     Indication: Anticoagulant therapy
     Route: 065
     Dates: start: 20100630
  5. ROSUVASTATIN CALCIUM [Concomitant]
     Active Substance: ROSUVASTATIN CALCIUM
     Indication: Adverse drug reaction
     Route: 065
     Dates: start: 20240204, end: 20250701

REACTIONS (3)
  - Spinal support [Not Recovered/Not Resolved]
  - Gait inability [Not Recovered/Not Resolved]
  - Back pain [Not Recovered/Not Resolved]

NARRATIVE: CASE EVENT DATE: 20250819
